FAERS Safety Report 10682597 (Version 3)
Quarter: 2015Q1

REPORT INFORMATION
  Report Type: Spontaneous
  Country: IT (occurrence: IT)
  Receive Date: 20141230
  Receipt Date: 20150306
  Transmission Date: 20150720
  Serious: Yes (Other)
  Sender: FDA-Public Use
  Company Number: IT-ACTAVIS-2014-27676

PATIENT
  Age: 38 Year
  Sex: Female

DRUGS (7)
  1. ACTIGRIP [Suspect]
     Active Substance: ACETAMINOPHEN\PSEUDOEPHEDRINE HYDROCHLORIDE\TRIPROLIDINE HYDROCHLORIDE
     Indication: INTENTIONAL SELF-INJURY
     Dosage: 6 DF, TOTAL
     Route: 048
     Dates: start: 20141113, end: 20141113
  2. NIMESULIDE (UNKNOWN) [Suspect]
     Active Substance: NIMESULIDE
     Indication: INTENTIONAL SELF-INJURY
     Dosage: 23 DF, TOTAL
     Route: 048
     Dates: start: 20141113, end: 20141113
  3. SPASMEX                            /00376202/ [Suspect]
     Active Substance: TROSPIUM CHLORIDE
     Indication: INTENTIONAL SELF-INJURY
     Dosage: 5 DF, TOTAL
     Route: 048
     Dates: start: 20141113, end: 20141113
  4. BUSCOPAN [Suspect]
     Active Substance: BUTYLSCOPOLAMINE BROMIDE
     Indication: INTENTIONAL SELF-INJURY
     Dosage: 6 DF, TOTAL
     Route: 048
     Dates: start: 20141113, end: 20141113
  5. DISSENTEN [Suspect]
     Active Substance: LOPERAMIDE HYDROCHLORIDE
     Indication: INTENTIONAL SELF-INJURY
     Dosage: 12 DF, TOTAL
     Route: 048
     Dates: start: 20141113, end: 20141113
  6. TACHIPIRINA [Suspect]
     Active Substance: ACETAMINOPHEN
     Indication: INTENTIONAL SELF-INJURY
     Dosage: 8 DF, TOTAL
     Route: 048
     Dates: start: 20141113, end: 20141113
  7. CETIRIZINE (UNKNOWN) [Suspect]
     Active Substance: CETIRIZINE HYDROCHLORIDE
     Indication: INTENTIONAL SELF-INJURY
     Dosage: 15 DF, TOTAL
     Route: 048
     Dates: start: 20141113, end: 20141113

REACTIONS (3)
  - Intentional overdose [Unknown]
  - Intentional self-injury [Unknown]
  - Drug abuse [Unknown]

NARRATIVE: CASE EVENT DATE: 20141113
